FAERS Safety Report 24974275 (Version 1)
Quarter: 2025Q1

REPORT INFORMATION
  Report Type: Spontaneous
  Country: US (occurrence: US)
  Receive Date: 20250217
  Receipt Date: 20250217
  Transmission Date: 20250409
  Serious: No
  Sender: BIOGEN
  Company Number: US-BIOGEN-2021BI01035700

PATIENT
  Sex: Female

DRUGS (11)
  1. VUMERITY [Suspect]
     Active Substance: DIROXIMEL FUMARATE
     Indication: Multiple sclerosis
     Route: 050
     Dates: start: 20210726, end: 20210803
  2. VUMERITY [Suspect]
     Active Substance: DIROXIMEL FUMARATE
     Route: 050
     Dates: start: 20210804, end: 20240402
  3. OCREVUS [Concomitant]
     Active Substance: OCRELIZUMAB
     Route: 050
  4. JUBLIA [Concomitant]
     Active Substance: EFINACONAZOLE
     Route: 050
  5. KETOCONAZOLE [Concomitant]
     Active Substance: KETOCONAZOLE
     Route: 050
  6. LEVOTHYROXINE [Concomitant]
     Active Substance: LEVOTHYROXINE
     Route: 050
  7. MOTRIN [Concomitant]
     Active Substance: IBUPROFEN
     Route: 050
  8. VITAMIN D3 [Concomitant]
     Active Substance: CHOLECALCIFEROL
     Route: 050
  9. VOLTAREN [Concomitant]
     Active Substance: DICLOFENAC SODIUM
     Route: 050
  10. ARTHRITIS PAIN [Concomitant]
     Route: 050
  11. LYRICA [Concomitant]
     Active Substance: PREGABALIN
     Route: 050

REACTIONS (7)
  - Tooth infection [Not Recovered/Not Resolved]
  - Headache [Not Recovered/Not Resolved]
  - Dehydration [Unknown]
  - Cognitive disorder [Unknown]
  - Abdominal pain upper [Not Recovered/Not Resolved]
  - Diarrhoea [Unknown]
  - Flushing [Recovered/Resolved]

NARRATIVE: CASE EVENT DATE: 20210101
